FAERS Safety Report 7315001-3 (Version None)
Quarter: 2011Q1

REPORT INFORMATION
  Report Type: 
  Country: None (occurrence: None)
  Receive Date: 20110225
  Receipt Date: 20100304
  Transmission Date: 20110831
  Serious: Yes (Other)
  Sender: FDA-Public Use
  Company Number: US-MYLANLABS-2010S1003615

PATIENT
  Age: 3 Year
  Sex: Female

DRUGS (3)
  1. AMNESTEEM [Suspect]
     Route: 048
     Dates: start: 20091112, end: 20100205
  2. AMNESTEEM [Suspect]
     Indication: NEOPLASM MALIGNANT
     Route: 048
     Dates: start: 20091112, end: 20100205
  3. CLARAVIS [Suspect]
     Indication: NEOPLASM MALIGNANT
     Route: 048

REACTIONS (2)
  - NEOPLASM RECURRENCE [None]
  - DRUG INEFFECTIVE FOR UNAPPROVED INDICATION [None]
